FAERS Safety Report 8127072-5 (Version None)
Quarter: 2012Q1

REPORT INFORMATION
  Report Type: 
  Country: None (occurrence: None)
  Receive Date: 20120210
  Receipt Date: 20120206
  Transmission Date: 20120608
  Serious: Yes (Other)
  Sender: FDA-Public Use
  Company Number: US-ELI_LILLY_AND_COMPANY-US201202001786

PATIENT
  Sex: Female

DRUGS (6)
  1. HUMALOG MIX 75/25 [Suspect]
     Indication: TYPE 1 DIABETES MELLITUS
     Dosage: 18 U, EACH MORNING
     Dates: start: 20091001
  2. HUMALOG MIX 75/25 [Suspect]
     Dosage: 15 U, EACH EVENING
     Dates: start: 20091001
  3. HUMALOG MIX 75/25 [Suspect]
     Dosage: 15 U, EACH EVENING
  4. HUMALOG MIX 75/25 [Suspect]
     Dosage: 18 U, EACH MORNING
     Dates: start: 20091001
  5. HUMALOG MIX 75/25 [Suspect]
     Dosage: 15 U, EACH EVENING
     Dates: start: 20091001
  6. HUMALOG MIX 75/25 [Suspect]
     Dosage: 18 U, EACH MORNING

REACTIONS (1)
  - DIALYSIS [None]
